FAERS Safety Report 7108476-6 (Version None)
Quarter: 2010Q4

REPORT INFORMATION
  Report Type: 
  Country: None (occurrence: None)
  Receive Date: 20101117
  Receipt Date: 20101104
  Transmission Date: 20110411
  Serious: Yes (Hospitalization)
  Sender: FDA-Public Use
  Company Number: US-ASTRAZENECA-2010SE52421

PATIENT
  Age: 19772 Day
  Sex: Female

DRUGS (1)
  1. NEXIUM [Suspect]
     Indication: GASTROINTESTINAL ULCER HAEMORRHAGE
     Route: 048
     Dates: start: 20101008, end: 20101010

REACTIONS (7)
  - BURNING SENSATION [None]
  - CHILLS [None]
  - FEELING COLD [None]
  - HEADACHE [None]
  - NAUSEA [None]
  - PARAESTHESIA [None]
  - VOMITING [None]
